FAERS Safety Report 13757965 (Version 1)
Quarter: 2017Q3

REPORT INFORMATION
  Report Type: Spontaneous
  Country: SE (occurrence: SE)
  Receive Date: 20170717
  Receipt Date: 20170717
  Transmission Date: 20171127
  Serious: Yes (Other)
  Sender: FDA-Public Use
  Company Number: SE-009507513-1707SWE002535

PATIENT
  Sex: Female

DRUGS (2)
  1. NUVARING [Suspect]
     Active Substance: ETHINYL ESTRADIOL\ETONOGESTREL
     Route: 067
  2. OESTRING [Suspect]
     Active Substance: ESTRADIOL
     Dosage: UNK

REACTIONS (3)
  - Deep vein thrombosis [Unknown]
  - Product name confusion [Unknown]
  - Wrong drug administered [Unknown]
